FAERS Safety Report 7632043-9 (Version None)
Quarter: 2011Q3

REPORT INFORMATION
  Report Type: 
  Country: None (occurrence: None)
  Receive Date: 20110725
  Receipt Date: 20100629
  Transmission Date: 20111222
  Serious: No
  Sender: FDA-Public Use
  Company Number: US-BRISTOL-MYERS SQUIBB COMPANY-15137078

PATIENT
  Age: 71 Year
  Sex: Male

DRUGS (8)
  1. COUMADIN [Suspect]
     Indication: TRANSIENT ISCHAEMIC ATTACK
     Route: 048
     Dates: start: 20100601
  2. LOPRESSOR [Suspect]
  3. ENALAPRIL MALEATE [Suspect]
  4. ASPIRIN [Suspect]
     Indication: STENT PLACEMENT
  5. DYAZIDE [Suspect]
     Dosage: 1DF=325/25MG.
  6. DIGOXIN [Suspect]
  7. PLAVIX [Suspect]
     Indication: STENT PLACEMENT
     Dates: start: 20090701
  8. DILTIAZEM HCL [Suspect]

REACTIONS (3)
  - DECREASED APPETITE [None]
  - LETHARGY [None]
  - FATIGUE [None]
